FAERS Safety Report 23561971 (Version 2)
Quarter: 2025Q1

REPORT INFORMATION
  Report Type: Spontaneous
  Country: US (occurrence: US)
  Receive Date: 20240225
  Receipt Date: 20250305
  Transmission Date: 20250408
  Serious: No
  Sender: AUROBINDO
  Company Number: US-AUROBINDO-AUR-APL-2023-082221

PATIENT
  Age: 66 Year
  Sex: Female
  Weight: 90.7 kg

DRUGS (1)
  1. ELETRIPTAN HYDROBROMIDE [Suspect]
     Active Substance: ELETRIPTAN HYDROBROMIDE
     Indication: Migraine
     Route: 048

REACTIONS (2)
  - Dysgeusia [Unknown]
  - Product odour abnormal [Unknown]
